FAERS Safety Report 5144810-4 (Version None)
Quarter: 2006Q4

REPORT INFORMATION
  Report Type: 
  Country: None (occurrence: None)
  Receive Date: 20061103
  Receipt Date: 20061103
  Transmission Date: 20070319
  Serious: Yes (Other)
  Sender: FDA-Public Use
  Company Number: None

PATIENT
  Sex: Male
  Weight: 81.6475 kg

DRUGS (1)
  1. PREDNISONE TAB [Suspect]
     Indication: PSORIASIS

REACTIONS (3)
  - BLINDNESS UNILATERAL [None]
  - EYE DISORDER [None]
  - RETINAL OEDEMA [None]
